FAERS Safety Report 20067269 (Version 2)
Quarter: 2022Q1

REPORT INFORMATION
  Report Type: Spontaneous
  Country: US (occurrence: US)
  Receive Date: 20211115
  Receipt Date: 20220117
  Transmission Date: 20220423
  Serious: Yes (Other)
  Sender: FDA-Public Use
  Company Number: US-SANOFI-00847224

PATIENT
  Age: 88 Year
  Sex: Female

DRUGS (1)
  1. DULCOLAX NOS [Suspect]
     Active Substance: BISACODYL OR DOCUSATE SODIUM
     Dosage: 1 DULCOLAX TABLET LAST NIGHT AT 8 OR 9 PM BEFORE BEDTIME
     Dates: start: 20211107

REACTIONS (6)
  - Cerebrovascular accident [Unknown]
  - Visual impairment [Unknown]
  - Ill-defined disorder [Unknown]
  - Drug ineffective [Unknown]
  - Product lot number issue [Unknown]
  - Expired product administered [Unknown]

NARRATIVE: CASE EVENT DATE: 20211101
